FAERS Safety Report 24350447 (Version 1)
Quarter: 2024Q3

REPORT INFORMATION
  Report Type: Spontaneous
  Country: IT (occurrence: IT)
  Receive Date: 20240923
  Receipt Date: 20240923
  Transmission Date: 20241017
  Serious: No
  Sender: ROCHE
  Company Number: IT-ROCHE-3515030

PATIENT
  Age: 53 Year
  Sex: Female

DRUGS (13)
  1. TRASTUZUMAB [Suspect]
     Active Substance: TRASTUZUMAB
     Indication: Breast cancer
     Dosage: 6 CYCLES? FREQUENCY TEXT:WEEKLY
     Route: 065
  2. CAPECITABINE [Concomitant]
     Active Substance: CAPECITABINE
     Dosage: 8 CYCLES
     Route: 048
     Dates: start: 200901
  3. DOXORUBICIN [Concomitant]
     Active Substance: DOXORUBICIN
  4. CYCLOPHOSPHAMIDE [Concomitant]
     Active Substance: CYCLOPHOSPHAMIDE
     Dosage: ON DAY 1-8
     Route: 042
  5. METHOTREXATE [Concomitant]
     Active Substance: METHOTREXATE
     Dosage: ON DAY 1-8
     Route: 042
  6. FLUOROURACIL [Concomitant]
     Active Substance: FLUOROURACIL
     Dosage: ON DAY 1-8
  7. PACLITAXEL [Concomitant]
     Active Substance: PACLITAXEL
     Dosage: 6 CYCLES? FREQUENCY TEXT:WEEKLY
  8. LETROZOLE [Concomitant]
     Active Substance: LETROZOLE
  9. GONADORELIN [Concomitant]
     Active Substance: GONADORELIN
     Dates: start: 200312
  10. FULVESTRANT [Concomitant]
     Active Substance: FULVESTRANT
  11. LAPATINIB [Concomitant]
     Active Substance: LAPATINIB
     Dosage: 8 CYCLES
     Dates: start: 200901
  12. LAPATINIB [Concomitant]
     Active Substance: LAPATINIB
     Dosage: 8 CYCLES
     Dates: start: 200906
  13. TAMOXIFEN [Concomitant]
     Active Substance: TAMOXIFEN
     Dates: start: 200312

REACTIONS (1)
  - Disease progression [Recovered/Resolved]
